FAERS Safety Report 10913963 (Version 1)
Quarter: 2015Q1

REPORT INFORMATION
  Report Type: Spontaneous
  Country: DE (occurrence: DE)
  Receive Date: 20150313
  Receipt Date: 20150313
  Transmission Date: 20150721
  Serious: Yes (Other)
  Sender: FDA-Public Use
  Company Number: DE-BAXTER-2014BAX016960

PATIENT
  Age: 63 Year
  Sex: Female

DRUGS (3)
  1. HYQVIA [Suspect]
     Active Substance: HUMAN IMMUNOGLOBULIN G\HYALURONIDASE RECOMBINANT HUMAN
     Indication: OFF LABEL USE
  2. IMMUNOGLOBULIN I.V [Suspect]
     Active Substance: HUMAN IMMUNOGLOBULIN G
     Indication: PRODUCT USED FOR UNKNOWN INDICATION
     Route: 042
  3. HYQVIA [Suspect]
     Active Substance: HUMAN IMMUNOGLOBULIN G\HYALURONIDASE RECOMBINANT HUMAN
     Indication: NON-HODGKIN^S LYMPHOMA
     Route: 058
     Dates: start: 20140402, end: 20140402

REACTIONS (5)
  - Headache [Recovered/Resolved]
  - Nausea [Recovered/Resolved]
  - Drug hypersensitivity [Not Recovered/Not Resolved]
  - Chills [Recovered/Resolved]
  - Dyspnoea [Recovered/Resolved]

NARRATIVE: CASE EVENT DATE: 20140402
